FAERS Safety Report 10339813 (Version 1)
Quarter: 2014Q3

REPORT INFORMATION
  Report Type: Spontaneous
  Country: US (occurrence: None)
  Receive Date: 20140723
  Receipt Date: 20140723
  Transmission Date: 20150326
  Serious: No
  Sender: FDA-Public Use
  Company Number: None

PATIENT
  Age: 36 Year
  Sex: Male
  Weight: 116.12 kg

DRUGS (1)
  1. LOSARTAN [Suspect]
     Active Substance: LOSARTAN
     Indication: HYPERTENSION
     Dosage: 1 PILL  ONCE DAILY TAKEN BY MOUTH
     Route: 048
     Dates: start: 20140602, end: 20140721

REACTIONS (7)
  - Headache [None]
  - Irritability [None]
  - Mood swings [None]
  - Gastritis [None]
  - Myalgia [None]
  - Weight increased [None]
  - Diarrhoea [None]

NARRATIVE: CASE EVENT DATE: 20140701
